FAERS Safety Report 20459856 (Version 2)
Quarter: 2022Q2

REPORT INFORMATION
  Report Type: Report from Study
  Country: US (occurrence: None)
  Receive Date: 20220211
  Receipt Date: 20220402
  Transmission Date: 20220721
  Serious: Yes (Hospitalization)
  Sender: FDA-Public Use
  Company Number: US-ROCHE-3015584

PATIENT
  Age: 63 Year
  Sex: Male
  Weight: 167.4 kg

DRUGS (2)
  1. ATEZOLIZUMAB [Suspect]
     Active Substance: ATEZOLIZUMAB
     Indication: Small cell lung cancer extensive stage
     Dosage: START DATE OF COURSE ASSOCIATED WITH EXPEDITED REPORT WAS 11/AUG/2021?TOTAL DOSE ADMINISTERED THIS C
     Route: 041
     Dates: start: 20210721, end: 20210811
  2. TALAZOPARIB [Suspect]
     Active Substance: TALAZOPARIB
     Indication: Small cell lung cancer extensive stage
     Dosage: TOTAL DOSE ADMINISTERED THIS COURSE (DOSE) WAS 19000 MG FOR TALAZOPARIB
     Route: 048
     Dates: start: 20210721, end: 20210901

REACTIONS (1)
  - Acute kidney injury [Recovered/Resolved]

NARRATIVE: CASE EVENT DATE: 20210902
